FAERS Safety Report 19713491 (Version 1)
Quarter: 2021Q3

REPORT INFORMATION
  Report Type: Report from Study
  Country: US (occurrence: US)
  Receive Date: 20210817
  Receipt Date: 20210817
  Transmission Date: 20211014
  Serious: Yes (Other)
  Sender: FDA-Public Use
  Company Number: US-JAZZ-2020-US-011063

PATIENT
  Sex: Female
  Weight: 48.53 kg

DRUGS (36)
  1. XYREM [Suspect]
     Active Substance: SODIUM OXYBATE
     Dosage: FIRST DOSE QUARTER OF TICK PAST 2.25?GRAM MARK AND QUARTER OF TICK UNDER 2.25 GRAM FOR SECOND DOSE
     Route: 048
     Dates: start: 2020, end: 2020
  2. XYREM [Suspect]
     Active Substance: SODIUM OXYBATE
     Dosage: 1.5 GARM,BID
     Route: 048
     Dates: start: 2020, end: 2020
  3. XYREM [Suspect]
     Active Substance: SODIUM OXYBATE
     Dosage: 3.25 GRAM, BID
     Route: 048
     Dates: start: 202011
  4. MODAFINIL. [Suspect]
     Active Substance: MODAFINIL
     Dosage: 1.5 GRAM, BID
  5. PROMETHAZINE [Concomitant]
     Active Substance: PROMETHAZINE HYDROCHLORIDE
     Indication: PRODUCT USED FOR UNKNOWN INDICATION
  6. TRAZODONE [Concomitant]
     Active Substance: TRAZODONE HYDROCHLORIDE
     Indication: PRODUCT USED FOR UNKNOWN INDICATION
  7. XYREM [Suspect]
     Active Substance: SODIUM OXYBATE
     Dosage: 1.75 GRAM, FIRST DOSE
     Route: 048
     Dates: start: 2020, end: 2020
  8. XYREM [Suspect]
     Active Substance: SODIUM OXYBATE
     Dosage: 1.5 GRAM, SECOND DOSE
     Route: 048
     Dates: start: 2020, end: 2020
  9. LORAZEPAM. [Concomitant]
     Active Substance: LORAZEPAM
     Indication: PRODUCT USED FOR UNKNOWN INDICATION
  10. XYREM [Suspect]
     Active Substance: SODIUM OXYBATE
     Dosage: TAKING BETWEEN 1.5 AND 1.75 GRAMS TWICE A NIGHT
     Route: 048
     Dates: start: 2020, end: 2020
  11. MODAFINIL. [Suspect]
     Active Substance: MODAFINIL
     Dosage: 1.5 GRAM
     Dates: start: 2020, end: 2020
  12. SUMATRIPTAN SUCCINATE. [Concomitant]
     Active Substance: SUMATRIPTAN SUCCINATE
     Indication: PRODUCT USED FOR UNKNOWN INDICATION
  13. XYREM [Suspect]
     Active Substance: SODIUM OXYBATE
     Dosage: 1.5 GRAM, BID
     Route: 048
     Dates: start: 2020, end: 2020
  14. XYREM [Suspect]
     Active Substance: SODIUM OXYBATE
     Dosage: 1.25 GRAM, BID
     Route: 048
  15. MODAFINIL. [Suspect]
     Active Substance: MODAFINIL
     Dosage: ONE TABLET IN MORNING AND HALF A TABLET IN AFTERNOON
  16. ALENDRONATE SODIUM. [Concomitant]
     Active Substance: ALENDRONATE SODIUM
     Indication: PRODUCT USED FOR UNKNOWN INDICATION
  17. HYDROXYZINE HCL [Concomitant]
     Active Substance: HYDROXYZINE HYDROCHLORIDE
     Indication: PRODUCT USED FOR UNKNOWN INDICATION
  18. TOPIRAMATE. [Concomitant]
     Active Substance: TOPIRAMATE
     Indication: PRODUCT USED FOR UNKNOWN INDICATION
  19. XYREM [Suspect]
     Active Substance: SODIUM OXYBATE
     Dosage: INCREASING HER DOSE A TINY BIT AT A TIME/INCREASE IN TINY INCREMENTS TO BRING DOSE UP GRADUALLY
     Route: 048
     Dates: start: 2020, end: 2020
  20. MODAFINIL. [Suspect]
     Active Substance: MODAFINIL
     Indication: HYPERVIGILANCE
     Dosage: UNKNOWN DOSE
     Dates: end: 202008
  21. TRANSDERM SCOP [Concomitant]
     Active Substance: SCOPOLAMINE
     Indication: PRODUCT USED FOR UNKNOWN INDICATION
  22. XYREM [Suspect]
     Active Substance: SODIUM OXYBATE
     Indication: CATAPLEXY
     Dosage: 2.25 GRAM, BID
     Route: 048
     Dates: start: 202008, end: 202008
  23. CEPHALEXIN [CEFALEXIN] [Suspect]
     Active Substance: CEPHALEXIN
     Indication: URINARY TRACT INFECTION
     Dosage: UNK
     Dates: start: 20200816, end: 20200822
  24. ZOLPIDEM TARTRATE. [Concomitant]
     Active Substance: ZOLPIDEM TARTRATE
     Indication: PRODUCT USED FOR UNKNOWN INDICATION
  25. DIAZEPAM. [Concomitant]
     Active Substance: DIAZEPAM
     Indication: PRODUCT USED FOR UNKNOWN INDICATION
  26. XYREM [Suspect]
     Active Substance: SODIUM OXYBATE
     Indication: NARCOLEPSY
     Dosage: 2.25 GRAM, QD
     Route: 048
     Dates: start: 202008, end: 2020
  27. XYREM [Suspect]
     Active Substance: SODIUM OXYBATE
     Dosage: 2.25 GRAM, BID
     Route: 048
     Dates: start: 2020, end: 2020
  28. MODAFINIL. [Suspect]
     Active Substance: MODAFINIL
     Dosage: INCREASED DOSE
     Dates: start: 202008
  29. ESTRADIOL. [Concomitant]
     Active Substance: ESTRADIOL
     Indication: PRODUCT USED FOR UNKNOWN INDICATION
  30. SCOPOLAMINE HBR [Concomitant]
     Active Substance: SCOPOLAMINE
     Indication: PRODUCT USED FOR UNKNOWN INDICATION
  31. TEMAZEPAM. [Concomitant]
     Active Substance: TEMAZEPAM
     Indication: PRODUCT USED FOR UNKNOWN INDICATION
  32. XYREM [Suspect]
     Active Substance: SODIUM OXYBATE
     Dosage: 1.5 GRAM, BID
     Route: 048
  33. AMITRIPTYLINE HCL [Concomitant]
     Active Substance: AMITRIPTYLINE
     Indication: PRODUCT USED FOR UNKNOWN INDICATION
  34. AMLODIPINE BESYLATE. [Concomitant]
     Active Substance: AMLODIPINE BESYLATE
     Indication: PRODUCT USED FOR UNKNOWN INDICATION
  35. ONDANSETRON HCL [Concomitant]
     Active Substance: ONDANSETRON HYDROCHLORIDE
     Indication: PRODUCT USED FOR UNKNOWN INDICATION
  36. PREMARIN [Concomitant]
     Active Substance: ESTROGENS, CONJUGATED
     Indication: PRODUCT USED FOR UNKNOWN INDICATION

REACTIONS (19)
  - Weight decreased [Recovering/Resolving]
  - Intentional product use issue [Unknown]
  - Candida infection [Recovering/Resolving]
  - Balance disorder [Not Recovered/Not Resolved]
  - Abdominal discomfort [Recovered/Resolved]
  - Confusional state [Recovered/Resolved]
  - Dizziness [Recovered/Resolved]
  - COVID-19 [Unknown]
  - Gastrooesophageal reflux disease [Recovering/Resolving]
  - Feeling abnormal [Not Recovered/Not Resolved]
  - Urinary tract infection [Unknown]
  - Palpitations [Recovered/Resolved]
  - Nausea [Unknown]
  - Thinking abnormal [Recovering/Resolving]
  - Blood pressure increased [Recovered/Resolved]
  - Migraine [Recovered/Resolved]
  - Muscle twitching [Not Recovered/Not Resolved]
  - Nightmare [Recovered/Resolved]
  - Tremor [Not Recovered/Not Resolved]

NARRATIVE: CASE EVENT DATE: 2020
